FAERS Safety Report 7700593-2 (Version None)
Quarter: 2011Q3

REPORT INFORMATION
  Report Type: 
  Country: None (occurrence: None)
  Receive Date: 20110822
  Receipt Date: 20110810
  Transmission Date: 20111222
  Serious: Yes (Hospitalization)
  Sender: FDA-Public Use
  Company Number: DE-CELGENEUS-062-21880-10010968

PATIENT
  Age: 63 Year
  Sex: Male
  Weight: 94 kg

DRUGS (10)
  1. REVLIMID [Suspect]
     Indication: PLASMACYTOMA
     Dosage: 25 MILLIGRAM
     Route: 048
     Dates: start: 20080812, end: 20091116
  2. DEXAMETHASONE [Concomitant]
     Indication: PLASMACYTOMA
     Dosage: 20 MILLIGRAM
     Route: 048
     Dates: start: 20080812, end: 20091116
  3. DEXAMETHASONE [Concomitant]
     Dosage: 20 MILLIGRAM
     Route: 065
     Dates: end: 20101004
  4. PANTOPRAZOLE [Concomitant]
     Dosage: 20
     Route: 065
  5. ZOMETA [Concomitant]
     Dosage: .1429 MILLIGRAM
     Route: 041
  6. HUMALOG [Concomitant]
     Indication: DIABETES MELLITUS
     Dosage: DEPENDING ON BLOOD SUGAR
     Route: 065
  7. METOPROLOL SUCCINATE [Concomitant]
     Dosage: 47.5 MILLIGRAM
     Route: 065
  8. ENOXAPARIN SODIUM [Concomitant]
     Indication: PROPHYLAXIS
     Dosage: .2
     Route: 065
     Dates: start: 20080812
  9. REVLIMID [Suspect]
     Dosage: 25 MILLIGRAM
     Route: 048
     Dates: start: 20091201
  10. REVLIMID [Suspect]
     Dosage: 25 MILLIGRAM
     Route: 048
     Dates: end: 20101004

REACTIONS (2)
  - WOUND [None]
  - RHABDOMYOSARCOMA [None]
